FAERS Safety Report 9289999 (Version 2)
Quarter: 2013Q2

REPORT INFORMATION
  Report Type: Spontaneous
  Country: US (occurrence: US)
  Receive Date: 20130515
  Receipt Date: 20130515
  Transmission Date: 20140414
  Serious: No
  Sender: FDA-Public Use
  Company Number: US-MYLANLABS-2012S1018236

PATIENT
  Age: 56 Year
  Sex: Female
  Weight: 53.98 kg

DRUGS (1)
  1. RIMSO-50 (DIMETHYL SULFOXIDE IRRIGATION USP) [Suspect]
     Indication: CYSTITIS INTERSTITIAL
     Route: 043
     Dates: start: 20120220, end: 20120312

REACTIONS (5)
  - Muscle spasms [Recovered/Resolved]
  - Micturition urgency [Recovered/Resolved]
  - Pollakiuria [Recovered/Resolved]
  - Burning sensation [Recovered/Resolved]
  - Hypoaesthesia [Recovered/Resolved]
